FAERS Safety Report 12884453 (Version 1)
Quarter: 2016Q4

REPORT INFORMATION
  Report Type: Other
  Country: US (occurrence: US)
  Receive Date: 20161026
  Receipt Date: 20161026
  Transmission Date: 20170207
  Serious: Yes (Hospitalization)
  Sender: FDA-Public Use
  Company Number: US-SHIRE-US201609810

PATIENT
  Age: 47 Year
  Sex: Female

DRUGS (2)
  1. NATPARA (PARATHYROID HORMONE) [Suspect]
     Active Substance: PARATHYROID HORMONE
     Dosage: 100 ?G, 1X/DAY:QD
     Route: 058
     Dates: start: 201608
  2. NATPARA (PARATHYROID HORMONE) [Suspect]
     Active Substance: PARATHYROID HORMONE
     Indication: HYPOPARATHYROIDISM
     Dosage: 75 ?G, 1X/DAY:QD
     Route: 058
     Dates: start: 20151204, end: 201608

REACTIONS (6)
  - Blood calcium decreased [Recovered/Resolved]
  - Hernia [Not Recovered/Not Resolved]
  - Oesophagitis [Not Recovered/Not Resolved]
  - Abdominal pain upper [Unknown]
  - Renal pain [Unknown]
  - Drug dose omission [Recovered/Resolved]

NARRATIVE: CASE EVENT DATE: 201608
